FAERS Safety Report 9163585 (Version 2)
Quarter: 2013Q2

REPORT INFORMATION
  Report Type: Spontaneous
  Country: GB (occurrence: GB)
  Receive Date: 20130314
  Receipt Date: 20130522
  Transmission Date: 20140414
  Serious: Yes (Other)
  Sender: FDA-Public Use
  Company Number: GB-ROCHE-1202072

PATIENT
  Age: 65 Year
  Sex: 0
  Weight: 63 kg

DRUGS (1)
  1. TRASTUZUMAB [Suspect]
     Indication: BREAST CANCER
     Route: 042
     Dates: start: 20120510, end: 20130211

REACTIONS (4)
  - Retinal haemorrhage [Unknown]
  - Retinal haemorrhage [Recovering/Resolving]
  - Retinal haemorrhage [Recovering/Resolving]
  - Vitreous haemorrhage [Recovering/Resolving]
